FAERS Safety Report 14029552 (Version 1)
Quarter: 2017Q4

REPORT INFORMATION
  Report Type: Spontaneous
  Country: US (occurrence: US)
  Receive Date: 20171002
  Receipt Date: 20171002
  Transmission Date: 20180321
  Serious: Yes (Disabling)
  Sender: FDA-Public Use
  Company Number: None

PATIENT
  Sex: Male
  Weight: 74.25 kg

DRUGS (15)
  1. VITAMIN D3 [Concomitant]
     Active Substance: CHOLECALCIFEROL
  2. ZANTAC [Concomitant]
     Active Substance: RANITIDINE HYDROCHLORIDE
  3. BACLOFEN. [Concomitant]
     Active Substance: BACLOFEN
  4. TAMSULOSIN [Concomitant]
     Active Substance: TAMSULOSIN
  5. KRILL OIL [Concomitant]
     Active Substance: DIETARY SUPPLEMENT
  6. BUPRENORPHINE. [Suspect]
     Active Substance: BUPRENORPHINE
     Indication: DRUG DEPENDENCE
     Dosage: ?          QUANTITY:30 TABLET(S);?
     Route: 060
  7. PRILOSEC [Concomitant]
     Active Substance: OMEPRAZOLE MAGNESIUM
  8. B COMLEX [Concomitant]
  9. ZOLOFT [Concomitant]
     Active Substance: SERTRALINE HYDROCHLORIDE
  10. ASA [Concomitant]
     Active Substance: ASPIRIN
  11. IRON [Concomitant]
     Active Substance: IRON
  12. TUMURIC [Concomitant]
  13. VITAMIN C [Concomitant]
     Active Substance: ASCORBIC ACID
  14. NEURONTIN [Concomitant]
     Active Substance: GABAPENTIN
  15. SYNTHROID [Concomitant]
     Active Substance: LEVOTHYROXINE SODIUM

REACTIONS (3)
  - Loss of employment [None]
  - Serotonin syndrome [None]
  - Asthenia [None]

NARRATIVE: CASE EVENT DATE: 20170911
